FAERS Safety Report 7047583-3 (Version None)
Quarter: 2010Q4

REPORT INFORMATION
  Report Type: 
  Country: None (occurrence: None)
  Receive Date: 20101015
  Receipt Date: 20101004
  Transmission Date: 20110411
  Serious: Yes (Congenital Anomaly, Other)
  Sender: FDA-Public Use
  Company Number: FR-ELI_LILLY_AND_COMPANY-FR201010001561

PATIENT

DRUGS (1)
  1. FLUOXETINE [Suspect]
     Dosage: 40 MG, DAILY (1/D)
     Route: 064

REACTIONS (5)
  - CARDIOMYOPATHY NEONATAL [None]
  - DRUG EXPOSURE DURING PREGNANCY [None]
  - EXOMPHALOS [None]
  - FOETAL GROWTH RESTRICTION [None]
  - SINGLE UMBILICAL ARTERY [None]
